FAERS Safety Report 19932435 (Version 1)
Quarter: 2021Q4

REPORT INFORMATION
  Report Type: Spontaneous
  Country: US (occurrence: US)
  Receive Date: 20211007
  Receipt Date: 20211007
  Transmission Date: 20220303
  Serious: No
  Sender: FDA-Public Use
  Company Number: None

PATIENT
  Age: 55 Year
  Sex: Male
  Weight: 102 kg

DRUGS (9)
  1. PRIVIGEN [Suspect]
     Active Substance: HUMAN IMMUNOGLOBULIN G
     Indication: Immunodeficiency common variable
     Dosage: ?          OTHER FREQUENCY:EVERY 4 WEEKS;
     Route: 041
     Dates: start: 20201015
  2. Acetaminophen 650 mg po [Concomitant]
  3. Diphenhydramine 25 mg po [Concomitant]
  4. ciclopirox topical [Concomitant]
  5. hydroxychloroquine 200 mg po [Concomitant]
  6. lexapro 20 mg po [Concomitant]
  7. mesalamine 1.2 gm po [Concomitant]
  8. protonix 40 mg po [Concomitant]
  9. vitamin D 1.25 mg po [Concomitant]

REACTIONS (3)
  - Urticaria [None]
  - Infusion related reaction [None]
  - Rash [None]

NARRATIVE: CASE EVENT DATE: 20211001
